FAERS Safety Report 5264230-1 (Version None)
Quarter: 2007Q1

REPORT INFORMATION
  Report Type: 
  Country: None (occurrence: None)
  Receive Date: 20070313
  Receipt Date: 20070301
  Transmission Date: 20070707
  Serious: Yes (Hospitalization)
  Sender: FDA-Public Use
  Company Number: FR-PFIZER INC-2007016884

PATIENT
  Age: 74 Year
  Sex: Female
  Weight: 49 kg

DRUGS (6)
  1. SOLU-MEDROL [Suspect]
     Indication: OVARIAN CANCER
     Dosage: DAILY DOSE:120MG
     Route: 042
     Dates: start: 20070123, end: 20070123
  2. CARBOPLATIN [Suspect]
     Indication: OVARIAN CANCER
     Dosage: DAILY DOSE:340MG
     Route: 042
     Dates: start: 20070123, end: 20070123
  3. PACLITAXEL [Suspect]
     Indication: OVARIAN CANCER
     Dosage: DAILY DOSE:220MG
     Route: 042
     Dates: start: 20070123, end: 20070123
  4. POLARAMINE [Suspect]
     Indication: OVARIAN CANCER
     Route: 042
     Dates: start: 20070123, end: 20070123
  5. ZANTAC [Suspect]
     Indication: OVARIAN CANCER
     Dosage: DAILY DOSE:50MG
     Route: 042
  6. ONDANSETRON HCL [Concomitant]
     Route: 042
     Dates: start: 20070123, end: 20070123

REACTIONS (6)
  - ERYTHEMA [None]
  - FORMICATION [None]
  - HYPERSENSITIVITY [None]
  - PRURITUS [None]
  - SENSE OF OPPRESSION [None]
  - VOMITING [None]
